FAERS Safety Report 22585850 (Version 3)
Quarter: 2023Q4

REPORT INFORMATION
  Report Type: Spontaneous
  Country: DE (occurrence: DE)
  Receive Date: 20230610
  Receipt Date: 20231202
  Transmission Date: 20240110
  Serious: Yes (Life-Threatening, Hospitalization, Other)
  Sender: FDA-Public Use
  Company Number: DE-ROCHE-3322872

PATIENT
  Age: 65 Year
  Sex: Female

DRUGS (10)
  1. CARBOPLATIN [Suspect]
     Active Substance: CARBOPLATIN
     Indication: Diffuse large B-cell lymphoma
     Dosage: 570 MG
     Route: 042
     Dates: start: 20230316, end: 20230316
  2. CARBOPLATIN [Suspect]
     Active Substance: CARBOPLATIN
     Dosage: 510 MG
     Route: 042
     Dates: start: 20230316
  3. ETOPOSIDE [Suspect]
     Active Substance: ETOPOSIDE
     Indication: Diffuse large B-cell lymphoma
     Dosage: 142 MG
     Route: 042
     Dates: start: 20230315, end: 20230317
  4. ETOPOSIDE [Suspect]
     Active Substance: ETOPOSIDE
     Dosage: 132 MG
     Route: 042
     Dates: start: 20230315
  5. RITUXIMAB [Suspect]
     Active Substance: RITUXIMAB
     Indication: Diffuse large B-cell lymphoma
     Dosage: 530 MG
     Route: 042
     Dates: start: 20230315, end: 20230315
  6. RITUXIMAB [Suspect]
     Active Substance: RITUXIMAB
     Dosage: 500 MG
     Route: 042
     Dates: start: 20230315
  7. IFOSFAMIDE [Suspect]
     Active Substance: IFOSFAMIDE
     Indication: Diffuse large B-cell lymphoma
     Dosage: 7100 MG
     Route: 042
     Dates: start: 20230315, end: 20230316
  8. IFOSFAMIDE [Suspect]
     Active Substance: IFOSFAMIDE
     Dosage: 6600 MG
     Route: 042
     Dates: start: 20230316
  9. POLATUZUMAB VEDOTIN [Suspect]
     Active Substance: POLATUZUMAB VEDOTIN
     Indication: Diffuse large B-cell lymphoma
     Dosage: 81 MG
     Route: 042
     Dates: start: 20230315, end: 20230315
  10. POLATUZUMAB VEDOTIN [Suspect]
     Active Substance: POLATUZUMAB VEDOTIN
     Dosage: 68.4 MG
     Route: 042
     Dates: start: 20230315

REACTIONS (4)
  - Peritonitis [Recovering/Resolving]
  - Enterocolitis [Recovered/Resolved]
  - Sepsis [Not Recovered/Not Resolved]
  - Febrile neutropenia [Unknown]

NARRATIVE: CASE EVENT DATE: 20230329
